FAERS Safety Report 9641009 (Version 1)
Quarter: 2013Q4

REPORT INFORMATION
  Report Type: Spontaneous
  Country: IN (occurrence: None)
  Receive Date: 20131021
  Receipt Date: 20131021
  Transmission Date: 20140711
  Serious: Yes (Other)
  Sender: FDA-Public Use
  Company Number: AUR-APL-2013-08436

PATIENT
  Age: 53 Year
  Sex: Male

DRUGS (1)
  1. PIPERACILLIN+TAZOBACTAM [Suspect]
     Indication: STAPHYLOCOCCAL INFECTION

REACTIONS (6)
  - Toxicity to various agents [None]
  - Diarrhoea [None]
  - Vomiting [None]
  - Nausea [None]
  - Drug intolerance [None]
  - Gastrointestinal disorder [None]
